FAERS Safety Report 5080855-0 (Version None)
Quarter: 2006Q3

REPORT INFORMATION
  Report Type: 
  Country: None (occurrence: None)
  Receive Date: 20060811
  Receipt Date: 20060731
  Transmission Date: 20061208
  Serious: Yes (Hospitalization, Other)
  Sender: FDA-Public Use
  Company Number: 2006070476

PATIENT
  Age: 78 Year
  Sex: Female
  Weight: 68.0396 kg

DRUGS (11)
  1. LIPITOR [Suspect]
     Indication: BLOOD CHOLESTEROL INCREASED
     Dosage: 20 MG (20 MG, 1 IN 1 D)
     Dates: start: 20060201, end: 20060401
  2. MINOXIDIL [Suspect]
     Indication: HYPERTENSION
     Dosage: 15 MG (5 MG, 3 IN 1 D)
     Dates: start: 20060401
  3. ATARAX [Suspect]
     Indication: PRURITUS
     Dosage: 25 MG (25 MG, 1 IN 1 D)
     Dates: start: 20060101, end: 20060101
  4. DIPHENHYDRAMINE HCL [Suspect]
     Indication: PRURITUS
     Dates: start: 20060101, end: 20060101
  5. PROCARDIA XL [Suspect]
     Indication: HYPERTENSION
  6. CLONDINE (CLONIDINE) [Concomitant]
  7. CALCITRIOL [Concomitant]
  8. MIRAPEX (PAMIPEXOLE) [Concomitant]
  9. ALBUTEROL (SALBUMATOL) [Concomitant]
  10. FLOVENT [Concomitant]
  11. LEVOFLOXACIN [Concomitant]

REACTIONS (29)
  - ANAEMIA [None]
  - BLOOD PRESSURE INCREASED [None]
  - BONE PAIN [None]
  - CHOLECYSTITIS CHRONIC [None]
  - CHOLELITHIASIS [None]
  - CHRONIC OBSTRUCTIVE PULMONARY DISEASE [None]
  - DISEASE RECURRENCE [None]
  - DIZZINESS [None]
  - DRUG INEFFECTIVE [None]
  - DYSPNOEA [None]
  - DYSPNOEA EXERTIONAL [None]
  - FLUID RETENTION [None]
  - HEPATIC FAILURE [None]
  - HEPATITIS A [None]
  - HYPERTENSION [None]
  - HYPERTENSIVE EMERGENCY [None]
  - JAUNDICE CHOLESTATIC [None]
  - OEDEMA PERIPHERAL [None]
  - ORTHOPNOEA [None]
  - OSTEOPOROSIS [None]
  - PALPITATIONS [None]
  - PITTING OEDEMA [None]
  - PRURITUS [None]
  - PULMONARY EMBOLISM [None]
  - RENAL FAILURE CHRONIC [None]
  - SINUS TACHYCARDIA [None]
  - TACHYCARDIA [None]
  - URINARY TRACT INFECTION [None]
  - WEIGHT INCREASED [None]
